FAERS Safety Report 7161988-1 (Version None)
Quarter: 2010Q4

REPORT INFORMATION
  Report Type: 
  Country: None (occurrence: None)
  Receive Date: 20101215
  Receipt Date: 20100803
  Transmission Date: 20110411
  Serious: Yes (Other)
  Sender: FDA-Public Use
  Company Number: BE-PFIZER INC-2010078751

PATIENT
  Age: 69 Year
  Sex: Female
  Weight: 60 kg

DRUGS (3)
  1. LYRICA [Suspect]
     Indication: NEURALGIA
     Dosage: 300 MG, 2X/DAY
     Route: 048
     Dates: start: 20091101
  2. DURAGESIC-100 [Concomitant]
  3. DETRUSITOL [Concomitant]

REACTIONS (10)
  - CHEST PAIN [None]
  - DRY MOUTH [None]
  - DYSURIA [None]
  - HAEMATOMA [None]
  - HYPERAESTHESIA [None]
  - HYPERHIDROSIS [None]
  - MONOPLEGIA [None]
  - MUSCLE ATROPHY [None]
  - MUSCLE SPASMS [None]
  - MYALGIA [None]
